FAERS Safety Report 9322258 (Version 1)
Quarter: 2013Q2

REPORT INFORMATION
  Report Type: Spontaneous
  Country: US (occurrence: None)
  Receive Date: 20130528
  Receipt Date: 20130528
  Transmission Date: 20140414
  Serious: Yes (Death, Hospitalization)
  Sender: FDA-Public Use
  Company Number: US-000706

PATIENT
  Age: 72 Year
  Sex: Female

DRUGS (1)
  1. TEDUGLUTIDE\WATER [Suspect]
     Indication: SHORT-BOWEL SYNDROME
     Route: 058
     Dates: start: 201304

REACTIONS (4)
  - Blood pressure decreased [None]
  - Renal failure [None]
  - Myocardial infarction [None]
  - Device dislocation [None]
